FAERS Safety Report 8891331 (Version 1)
Quarter: 2012Q4

REPORT INFORMATION
  Report Type: Spontaneous
  Country: US (occurrence: None)
  Receive Date: 20121105
  Receipt Date: 20121105
  Transmission Date: 20130627
  Serious: Yes (Other)
  Sender: FDA-Public Use
  Company Number: None

PATIENT
  Age: 59 Year
  Sex: Female
  Weight: 67.59 kg

DRUGS (1)
  1. VERAMYST [Suspect]
     Indication: ALLERGIC RHINITIS
     Dosage: 2 sprays each nostril, once a day, nasal
     Route: 045
     Dates: start: 201208, end: 201208

REACTIONS (1)
  - Dizziness [None]
